FAERS Safety Report 8424989-9 (Version None)
Quarter: 2012Q2

REPORT INFORMATION
  Report Type: 
  Country: None (occurrence: None)
  Receive Date: 20120611
  Receipt Date: 20120530
  Transmission Date: 20120825
  Serious: Yes (Hospitalization)
  Sender: FDA-Public Use
  Company Number: JP-BRISTOL-MYERS SQUIBB COMPANY-16663502

PATIENT
  Sex: Male

DRUGS (8)
  1. SODIUM BICARBONATE [Concomitant]
     Dosage: TABS
     Route: 048
     Dates: start: 20100520, end: 20110303
  2. FLUOROURACIL [Concomitant]
     Indication: COLON CANCER
     Dosage: INTRAHEPATIC
     Route: 042
     Dates: start: 20100618, end: 20101126
  3. DEXAMETHASONE SODIUM PHOSPHATE [Concomitant]
     Indication: PREMEDICATION
     Route: 042
     Dates: start: 20100520, end: 20110303
  4. GRANISETRON [Concomitant]
     Indication: ANTIEMETIC SUPPORTIVE CARE
     Route: 042
     Dates: start: 20100520, end: 20110303
  5. SINSERON [Concomitant]
     Indication: ANTIEMETIC SUPPORTIVE CARE
     Dosage: TABS
     Route: 048
     Dates: start: 20100520, end: 20110303
  6. ERBITUX [Suspect]
     Indication: COLON CANCER
     Dosage: 20MAY-20MAY10,700MG 28MAY-26NOV10,400MG 14JAN-18FEB11,300MG,1IN2WK 03MAR-03MAR11,400MG
     Route: 042
     Dates: start: 20100520, end: 20110303
  7. IRINOTECAN HCL [Concomitant]
     Indication: COLON CANCER
     Dosage: 20MAY-20MAY10,120MG,1IN1D 03MAR-03MAR11,140MG,1IN1WK
     Route: 042
     Dates: start: 20100520, end: 20110303
  8. POLARAMINE [Concomitant]
     Indication: PREMEDICATION
     Route: 042
     Dates: start: 20100520, end: 20110303

REACTIONS (3)
  - GROIN ABSCESS [None]
  - SKIN REACTION [None]
  - PELVIC ABSCESS [None]
